FAERS Safety Report 8176794-9 (Version None)
Quarter: 2012Q1

REPORT INFORMATION
  Report Type: 
  Country: None (occurrence: None)
  Receive Date: 20120228
  Receipt Date: 20120220
  Transmission Date: 20120608
  Serious: Yes (Hospitalization)
  Sender: FDA-Public Use
  Company Number: 2012MA002279

PATIENT
  Age: 29 Year
  Sex: Male
  Weight: 60 kg

DRUGS (6)
  1. FEVERALL [Suspect]
     Dosage: 50 G; X1; PO
  2. OLANZAPINE [Concomitant]
  3. AMITRIPTYLINE HCL [Concomitant]
  4. ALCOHOL [Concomitant]
  5. ALCOHOL [Concomitant]
  6. VALPROATE SODIUM [Concomitant]

REACTIONS (11)
  - IMPAIRED GASTRIC EMPTYING [None]
  - DRUG LEVEL INCREASED [None]
  - ACUTE HEPATIC FAILURE [None]
  - MULTI-ORGAN FAILURE [None]
  - HAEMORRHAGE [None]
  - OVERDOSE [None]
  - GENERAL PHYSICAL HEALTH DETERIORATION [None]
  - ALCOHOL USE [None]
  - COAGULOPATHY [None]
  - BLOOD LACTIC ACID INCREASED [None]
  - ENCEPHALOPATHY [None]
